FAERS Safety Report 8481333-9 (Version None)
Quarter: 2012Q3

REPORT INFORMATION
  Report Type: 
  Country: None (occurrence: None)
  Receive Date: 20120702
  Receipt Date: 20120618
  Transmission Date: 20120928
  Serious: No
  Sender: FDA-Public Use
  Company Number: US-JNJFOC-20120406442

PATIENT
  Sex: Female
  Weight: 72.12 kg

DRUGS (8)
  1. DURAGESIC-100 [Suspect]
     Route: 062
     Dates: start: 20120201
  2. IBUPROFEN [Concomitant]
     Indication: INFLAMMATION
     Route: 048
     Dates: start: 20111201
  3. IBUPROFEN [Concomitant]
     Indication: PAIN
     Route: 048
     Dates: start: 20111201
  4. DURAGESIC-100 [Suspect]
     Route: 062
     Dates: start: 20120126
  5. DURAGESIC-100 [Suspect]
     Indication: PAIN
     Route: 062
     Dates: start: 20070101, end: 20090101
  6. DURAGESIC-100 [Suspect]
     Route: 062
     Dates: start: 20110101, end: 20120201
  7. TRAZODONE HCL [Concomitant]
     Indication: INFLAMMATION
     Dosage: 50 - 100 MG
     Route: 065
  8. KLONOPIN [Concomitant]
     Indication: ANXIETY
     Route: 048
     Dates: start: 19950201

REACTIONS (5)
  - PRODUCT ADHESION ISSUE [None]
  - INAPPROPRIATE SCHEDULE OF DRUG ADMINISTRATION [None]
  - DRUG INEFFECTIVE [None]
  - CONDITION AGGRAVATED [None]
  - PRODUCT QUALITY ISSUE [None]
